FAERS Safety Report 17962203 (Version 1)
Quarter: 2020Q2

REPORT INFORMATION
  Report Type: Spontaneous
  Country: US (occurrence: US)
  Receive Date: 20200630
  Receipt Date: 20200630
  Transmission Date: 20200714
  Serious: No
  Sender: FDA-Public Use
  Company Number: US-PFIZER INC-2020250304

PATIENT
  Age: 81 Year
  Sex: Female
  Weight: 64.41 kg

DRUGS (2)
  1. PREDNISONE. [Concomitant]
     Active Substance: PREDNISONE
     Indication: ARTHRITIS
     Dosage: 5 MG, 1X/DAY
  2. XELJANZ XR [Suspect]
     Active Substance: TOFACITINIB CITRATE
     Indication: RHEUMATOID ARTHRITIS
     Dosage: 11 MG, DAILY
     Dates: start: 2020, end: 202006

REACTIONS (6)
  - Gastric disorder [Unknown]
  - Vomiting [Unknown]
  - Asthenia [Unknown]
  - Tremor [Recovering/Resolving]
  - Malaise [Unknown]
  - Drug ineffective [Unknown]
